FAERS Safety Report 9825580 (Version 1)
Quarter: 2013Q4

REPORT INFORMATION
  Report Type: Spontaneous
  Country: GB (occurrence: None)
  Receive Date: 20131101
  Receipt Date: 20131101
  Transmission Date: 20140711
  Serious: Yes (Other)
  Sender: FDA-Public Use
  Company Number: E2B_00001342

PATIENT
  Age: 85 Year
  Sex: Female
  Weight: 76.2 kg

DRUGS (5)
  1. LOSARTAN POTASSIUM [Suspect]
     Indication: HYPERTENSION
     Dosage: 50 MG (50 MG, 1 IN 1 D)
     Dates: start: 201202, end: 201204
  2. OMEGA-3 FISH OIL [Concomitant]
  3. VITAMIN B6 [Concomitant]
  4. VITAMIN D [Concomitant]
  5. MAGNESIUM [Concomitant]

REACTIONS (3)
  - Myalgia [None]
  - Musculoskeletal pain [None]
  - Muscular weakness [None]
